FAERS Safety Report 10135930 (Version 4)
Quarter: 2014Q3

REPORT INFORMATION
  Report Type: Spontaneous
  Country: BR (occurrence: BR)
  Receive Date: 20140429
  Receipt Date: 20140812
  Transmission Date: 20150326
  Serious: Yes (Death, Hospitalization, Disabling)
  Sender: FDA-Public Use
  Company Number: BR-ROCHE-1389189

PATIENT
  Age: 34 Year
  Sex: Male
  Weight: 70 kg

DRUGS (4)
  1. VESANOID [Suspect]
     Active Substance: TRETINOIN
     Route: 048
  2. IDARUBICIN [Concomitant]
     Active Substance: IDARUBICIN
     Route: 048
  3. TOPOTECAN [Concomitant]
     Active Substance: TOPOTECAN\TOPOTECAN HYDROCHLORIDE
     Route: 048
  4. VESANOID [Suspect]
     Active Substance: TRETINOIN
     Indication: LEUKAEMIA
     Route: 048

REACTIONS (3)
  - Dysphagia [Unknown]
  - Disease progression [Unknown]
  - Sepsis [Fatal]
